FAERS Safety Report 6928384-0 (Version None)
Quarter: 2010Q3

REPORT INFORMATION
  Report Type: 
  Country: None (occurrence: None)
  Receive Date: 20100817
  Receipt Date: 20100810
  Transmission Date: 20110219
  Serious: Yes (Death, Hospitalization, Other)
  Sender: FDA-Public Use
  Company Number: FR-AMGEN-QUU430150

PATIENT
  Sex: Male

DRUGS (2)
  1. VECTIBIX [Suspect]
     Indication: COLORECTAL CANCER
     Dates: start: 20100728, end: 20100728
  2. MINOCYCLINE HCL [Concomitant]
     Dates: start: 20100728

REACTIONS (19)
  - ABDOMINAL DISTENSION [None]
  - ABDOMINAL PAIN [None]
  - ANURIA [None]
  - BLOOD LACTIC ACID INCREASED [None]
  - C-REACTIVE PROTEIN ABNORMAL [None]
  - CARDIAC ARREST [None]
  - CIRCULATORY COLLAPSE [None]
  - DEHYDRATION [None]
  - HYPERVENTILATION [None]
  - HYPOXIA [None]
  - LOSS OF CONSCIOUSNESS [None]
  - LUNG DISORDER [None]
  - PULSE ABSENT [None]
  - PYREXIA [None]
  - RALES [None]
  - RENAL FAILURE ACUTE [None]
  - RESPIRATORY DISTRESS [None]
  - SEPTIC SHOCK [None]
  - VOMITING [None]
